FAERS Safety Report 19318680 (Version 2)
Quarter: 2021Q2

REPORT INFORMATION
  Report Type: Spontaneous
  Country: US (occurrence: US)
  Receive Date: 20210527
  Receipt Date: 20210624
  Transmission Date: 20210717
  Serious: No
  Sender: FDA-Public Use
  Company Number: US-ORGANON-O2105USA002164

PATIENT
  Age: 62 Year
  Sex: Female

DRUGS (1)
  1. ALENDRONATE SODIUM. [Suspect]
     Active Substance: ALENDRONATE SODIUM
     Dosage: UNK
     Route: 048
     Dates: start: 201911, end: 20210511

REACTIONS (11)
  - Temporomandibular joint syndrome [Recovering/Resolving]
  - Trismus [Recovering/Resolving]
  - Gingival pain [Recovering/Resolving]
  - Oral contusion [Recovering/Resolving]
  - Weight decreased [Recovering/Resolving]
  - Ear pain [Recovering/Resolving]
  - Swollen tongue [Recovering/Resolving]
  - Tongue biting [Recovering/Resolving]
  - Oral pain [Recovering/Resolving]
  - Stomatitis [Recovering/Resolving]
  - Pain in jaw [Recovering/Resolving]

NARRATIVE: CASE EVENT DATE: 202007
